FAERS Safety Report 5604645-2 (Version None)
Quarter: 2008Q1

REPORT INFORMATION
  Report Type: 
  Country: None (occurrence: None)
  Receive Date: 20080128
  Receipt Date: 20080122
  Transmission Date: 20080703
  Serious: Yes (Hospitalization)
  Sender: FDA-Public Use
  Company Number: TR-MERCK-0801TUR00006

PATIENT
  Age: 70 Year
  Sex: Male

DRUGS (3)
  1. COZAAR [Suspect]
     Route: 048
  2. ATORVASTATIN [Concomitant]
     Route: 065
  3. AMLODIPINE BESYLATE [Concomitant]
     Route: 065

REACTIONS (1)
  - PANCREATITIS [None]
